FAERS Safety Report 9227080 (Version 2)
Quarter: 2013Q2

REPORT INFORMATION
  Report Type: Spontaneous
  Country: US (occurrence: None)
  Receive Date: 20130410
  Receipt Date: 20130430
  Transmission Date: 20140414
  Serious: Yes (Other)
  Sender: FDA-Public Use
  Company Number: AUR-APL-2013-02913

PATIENT
  Age: 71 Year
  Sex: Female
  Weight: 65.76 kg

DRUGS (8)
  1. VENLAFAXINE [Suspect]
     Indication: ANXIETY
     Dosage: 225 MG (75 MG, 3 IN 1 D), ORAL
     Route: 048
     Dates: start: 201301
  2. VENLAFAXINE [Suspect]
     Indication: DEPRESSION
     Dosage: 225 MG (75 MG, 3 IN 1 D), ORAL
     Route: 048
     Dates: start: 201301
  3. PRILOSEC [Concomitant]
  4. KLONOPIN (CLONAZEPAM) (TABLETS) [Concomitant]
  5. BENTYL (DICYCLOVERINE HYDROCHLORIDE) [Concomitant]
  6. MOBIC (MELOXICAM) [Concomitant]
  7. ESTRADIOL (ESTRADIOL) (GEL) [Concomitant]
  8. NEURONTIN (GABAPENTIN) [Concomitant]

REACTIONS (7)
  - Headache [None]
  - Anxiety [None]
  - Tremor [None]
  - Nervousness [None]
  - Cystitis [None]
  - Coordination abnormal [None]
  - Feeling abnormal [None]
